FAERS Safety Report 10100596 (Version 1)
Quarter: 2014Q2

REPORT INFORMATION
  Report Type: Spontaneous
  Country: US (occurrence: US)
  Receive Date: 20140423
  Receipt Date: 20140423
  Transmission Date: 20141212
  Serious: Yes (Death, Other)
  Sender: FDA-Public Use
  Company Number: US-BAXTER-2014BAX019297

PATIENT
  Age: 48 Year
  Sex: Female

DRUGS (4)
  1. GAMMAGARD LIQUID [Suspect]
     Indication: IMMUNE THROMBOCYTOPENIC PURPURA
     Route: 042
  2. RITUXAN [Suspect]
     Indication: IMMUNE THROMBOCYTOPENIC PURPURA
     Route: 065
  3. PLAQUENIL [Concomitant]
     Indication: PRODUCT USED FOR UNKNOWN INDICATION
     Route: 065
  4. METHOTREXATE [Concomitant]
     Indication: PRODUCT USED FOR UNKNOWN INDICATION
     Dosage: STOPPED ANTI-TNF THERAPY 2 MONTHS PRIOR TO HOSPITALIZATION DUE TO FINANCIAL CONSTRAINTS
     Route: 065

REACTIONS (6)
  - Systemic inflammatory response syndrome [Unknown]
  - Acidosis [Unknown]
  - Renal failure acute [Unknown]
  - Cardiac arrest [Fatal]
  - Zygomycosis [Fatal]
  - Embolism [Fatal]
